FAERS Safety Report 16502659 (Version 1)
Quarter: 2019Q3

REPORT INFORMATION
  Report Type: Spontaneous
  Country: DE (occurrence: DE)
  Receive Date: 20190701
  Receipt Date: 20190701
  Transmission Date: 20191004
  Serious: Yes (Hospitalization, Other)
  Sender: FDA-Public Use
  Company Number: PHHY2019DE149909

PATIENT
  Age: 55 Year
  Sex: Female

DRUGS (10)
  1. TACROLIMUS. [Suspect]
     Active Substance: TACROLIMUS
     Indication: DERMATOMYOSITIS
     Route: 065
  2. AZATHIOPRINE. [Suspect]
     Active Substance: AZATHIOPRINE
     Indication: DERMATOMYOSITIS
     Route: 065
  3. AZATHIOPRINE. [Suspect]
     Active Substance: AZATHIOPRINE
     Indication: INTERSTITIAL LUNG DISEASE
  4. MYCOPHENOLATE MOFETIL. [Suspect]
     Active Substance: MYCOPHENOLATE MOFETIL
     Indication: INTERSTITIAL LUNG DISEASE
  5. METHOTREXATE. [Suspect]
     Active Substance: METHOTREXATE
     Indication: DERMATOMYOSITIS
     Route: 065
  6. TACROLIMUS. [Suspect]
     Active Substance: TACROLIMUS
     Indication: INTERSTITIAL LUNG DISEASE
  7. MYCOPHENOLATE MOFETIL. [Suspect]
     Active Substance: MYCOPHENOLATE MOFETIL
     Indication: DERMATOMYOSITIS
     Route: 065
  8. HYDROXYCHLOROQUINE [Suspect]
     Active Substance: HYDROXYCHLOROQUINE
     Indication: DERMATOMYOSITIS
     Route: 065
  9. HYDROXYCHLOROQUINE [Suspect]
     Active Substance: HYDROXYCHLOROQUINE
     Indication: INTERSTITIAL LUNG DISEASE
  10. METHOTREXATE. [Suspect]
     Active Substance: METHOTREXATE
     Indication: INTERSTITIAL LUNG DISEASE

REACTIONS (7)
  - Interstitial lung disease [Unknown]
  - Product use in unapproved indication [Unknown]
  - Dermatomyositis [Unknown]
  - Dyspnoea [Unknown]
  - Condition aggravated [Unknown]
  - Lung disorder [Unknown]
  - Drug intolerance [Unknown]
